FAERS Safety Report 7469919-1 (Version None)
Quarter: 2011Q2

REPORT INFORMATION
  Report Type: 
  Country: None (occurrence: None)
  Receive Date: 20110510
  Receipt Date: 20110225
  Transmission Date: 20111010
  Serious: Yes (Hospitalization)
  Sender: FDA-Public Use
  Company Number: CO-ROCHE-762090

PATIENT
  Sex: Female

DRUGS (3)
  1. PREDNISOLONE [Concomitant]
  2. MYCOPHENOLATE MOFETIL [Suspect]
     Route: 048
     Dates: start: 20100508
  3. FUROSEMIDE [Concomitant]

REACTIONS (3)
  - PULMONARY OEDEMA [None]
  - RENAL FAILURE ACUTE [None]
  - ABDOMINAL PAIN [None]
